FAERS Safety Report 7584173-8 (Version None)
Quarter: 2011Q2

REPORT INFORMATION
  Report Type: 
  Country: None (occurrence: None)
  Receive Date: 20110630
  Receipt Date: 20110623
  Transmission Date: 20111010
  Serious: Yes (Other)
  Sender: FDA-Public Use
  Company Number: GB-PFIZER INC-2011096535

PATIENT
  Age: 21 Year
  Sex: Female

DRUGS (3)
  1. DAUNORUBICIN HYDROCHLORIDE [Suspect]
  2. GEMTUZUMAB OZOGAMICIN [Suspect]
     Dosage: 5.3 MG, UNK
     Dates: start: 20110328
  3. CYTARABINE [Suspect]

REACTIONS (1)
  - HEPATOTOXICITY [None]
